FAERS Safety Report 5546616-0 (Version None)
Quarter: 2007Q4

REPORT INFORMATION
  Report Type: 
  Country: None (occurrence: None)
  Receive Date: 20071211
  Receipt Date: 20071204
  Transmission Date: 20080405
  Serious: Yes (Death, Hospitalization)
  Sender: FDA-Public Use
  Company Number: AU-JNJFOC-20071000382

PATIENT
  Age: 43 Year
  Sex: Male
  Weight: 84.5 kg

DRUGS (11)
  1. DOXORUBICIN HCL [Suspect]
     Indication: GLIOBLASTOMA MULTIFORME
     Route: 042
  2. TEMOZOLOMIDE [Suspect]
     Indication: GLIOBLASTOMA MULTIFORME
     Route: 048
  3. DEXAMETHASONE TAB [Suspect]
     Route: 065
  4. DEXAMETHASONE TAB [Suspect]
     Indication: DRUG USE FOR UNKNOWN INDICATION
     Route: 065
  5. AROPAX [Concomitant]
     Indication: DEPRESSION
     Route: 048
  6. MAGMIN [Concomitant]
     Indication: BLOOD MAGNESIUM DECREASED
     Route: 048
  7. SLOW-K [Concomitant]
     Indication: BLOOD POTASSIUM DECREASED
     Route: 048
  8. LORAZEPAM [Concomitant]
     Indication: ANXIETY
     Dosage: AS NEEDED
  9. INDAPAMIDE [Concomitant]
     Indication: DIURETIC THERAPY
     Route: 065
  10. ASPIRIN [Concomitant]
     Route: 065
  11. COVERSYL [Concomitant]
     Indication: HYPERTENSION
     Route: 065

REACTIONS (2)
  - FUNGAL SEPSIS [None]
  - GLIOBLASTOMA MULTIFORME [None]
